FAERS Safety Report 7658775-4 (Version None)
Quarter: 2011Q3

REPORT INFORMATION
  Report Type: 
  Country: None (occurrence: None)
  Receive Date: 20110805
  Receipt Date: 20110805
  Transmission Date: 20111222
  Serious: No
  Sender: FDA-Public Use
  Company Number: None

PATIENT
  Sex: Female
  Weight: 61.234 kg

DRUGS (1)
  1. ALPRAZOLAM [Suspect]
     Indication: ANXIETY
     Dosage: 1MG
     Route: 048
     Dates: start: 20110714, end: 20110803

REACTIONS (3)
  - HALLUCINATION [None]
  - PRODUCT SUBSTITUTION ISSUE [None]
  - TREMOR [None]
